FAERS Safety Report 24454965 (Version 2)
Quarter: 2024Q4

REPORT INFORMATION
  Report Type: Report from Study
  Country: US (occurrence: US)
  Receive Date: 20241017
  Receipt Date: 20241018
  Transmission Date: 20250115
  Serious: No
  Sender: ROCHE
  Company Number: US-ROCHE-3479233

PATIENT
  Age: 72 Year
  Sex: Male
  Weight: 99.79 kg

DRUGS (14)
  1. RITUXAN [Suspect]
     Active Substance: RITUXIMAB
     Indication: Central nervous system lesion
     Route: 042
     Dates: start: 202009
  2. RITUXAN [Suspect]
     Active Substance: RITUXIMAB
     Indication: Neuromyelitis optica spectrum disorder
     Dosage: DOSING FREQUENCY FOR 12 WEEKS ;ONGOING: NO
     Route: 042
  3. RITUXAN [Suspect]
     Active Substance: RITUXIMAB
     Dosage: THIS DOSING FREQUENCY TRIED FOR 2 CONSECUTIVE 6 MONTH PERIODS ;ONGOING: NO
     Route: 042
  4. RITUXAN [Suspect]
     Active Substance: RITUXIMAB
     Dosage: REPEAT DOSING FREQUENCY 1 INFUSION EVERY WEEK FOR 12 WEEKS ;ONGOING: NO
     Route: 042
  5. RITUXAN [Suspect]
     Active Substance: RITUXIMAB
     Dosage: YES
     Route: 042
  6. GABAPENTIN [Concomitant]
     Active Substance: GABAPENTIN
     Indication: Restless legs syndrome
     Dosage: ORAL PILL 600 MG THRICE A DAY
     Dates: start: 2011
  7. MODAFINIL [Concomitant]
     Active Substance: MODAFINIL
     Dosage: ORAL PILL 200 MG ONCE A DAY IN THE A.M. ONGOING: YES
     Dates: start: 2020
  8. OXYBUTYNIN [Concomitant]
     Active Substance: OXYBUTYNIN
     Dosage: ORAL PILL 10 MG ONCE A DAY
     Dates: start: 2021
  9. MAGNESIUM [Concomitant]
     Active Substance: MAGNESIUM
     Indication: Restless legs syndrome
     Dosage: ORAL PILL 400 MG ONCE A DAY
     Dates: start: 2020
  10. COENZYME Q10 [Concomitant]
     Active Substance: DIETARY SUPPLEMENT\UBIDECARENONE
     Indication: Vitamin supplementation
     Dosage: ORAL CAPSULES 400 MG ONCE A DAY
     Dates: start: 2020
  11. VITAMIN D3 [Concomitant]
     Active Substance: CHOLECALCIFEROL
     Indication: Vitamin supplementation
     Dosage: ORAL PILL 500 IU ONCE A DAY
  12. HERBALS\TURMERIC [Concomitant]
     Active Substance: HERBALS\TURMERIC
     Indication: Vitamin supplementation
     Dosage: ORAL CAPSULES 1000 MG ONCE A DAY
     Dates: start: 202306
  13. CALCIUM [Concomitant]
     Active Substance: CALCIUM
     Indication: Vitamin supplementation
     Dosage: ORAL PILL ONCE A DAY
     Dates: start: 2020
  14. CITRACAL + D3 [Concomitant]
     Indication: Vitamin supplementation
     Dosage: ORAL PILL ONCE A DAY

REACTIONS (4)
  - Paraesthesia oral [Not Recovered/Not Resolved]
  - Off label use [Unknown]
  - Head discomfort [Recovered/Resolved]
  - Hypergammaglobulinaemia benign monoclonal [Not Recovered/Not Resolved]

NARRATIVE: CASE EVENT DATE: 20200901
